FAERS Safety Report 13331368 (Version 3)
Quarter: 2017Q1

REPORT INFORMATION
  Report Type: Report from Study
  Country: KR (occurrence: KR)
  Receive Date: 20170314
  Receipt Date: 20170329
  Transmission Date: 20170428
  Serious: Yes (Hospitalization)
  Sender: FDA-Public Use
  Company Number: KR-ROCHE-1903667

PATIENT
  Age: 69 Year
  Sex: Female
  Weight: 41.7 kg

DRUGS (29)
  1. JURNISTA IR [Concomitant]
     Indication: PROPHYLAXIS
     Route: 048
     Dates: start: 20161122
  2. SYLCON [Concomitant]
     Indication: CONSTIPATION
     Route: 048
     Dates: start: 20170109
  3. NASERON [Concomitant]
     Indication: NAUSEA
     Route: 042
     Dates: start: 20160920
  4. ATEZOLIZUMAB [Suspect]
     Active Substance: ATEZOLIZUMAB
     Indication: GASTRIC CANCER
     Dosage: DATE OF MOST RECENT DOSE OF ATEZOLIZUMAB, 20/FEB/2017
     Route: 042
     Dates: start: 20161004
  5. BEVACIZUMAB [Suspect]
     Active Substance: BEVACIZUMAB
     Indication: GASTRIC CANCER
     Dosage: DATE OF MOST RECENT DOSE OF ATEZOLIZUMAB, 20/FEB/2017
     Route: 042
     Dates: start: 20161004
  6. 5-FU [Suspect]
     Active Substance: FLUOROURACIL
     Indication: GASTRIC CANCER
     Dosage: LAST DOSE, 1600 MG/M2?DATE OF MOST RECENT DOSE, 20/FEB/2017
     Route: 042
     Dates: start: 20161004
  7. MAGNESIUM OXIDE. [Concomitant]
     Active Substance: MAGNESIUM OXIDE
     Indication: CONSTIPATION
     Route: 048
  8. URSA [Concomitant]
     Indication: PROPHYLAXIS
     Route: 048
     Dates: start: 20161103
  9. MOTILITONE [Concomitant]
     Active Substance: HERBALS
     Indication: PROPHYLAXIS
     Route: 048
     Dates: start: 20161124
  10. LEGALON [Concomitant]
     Active Substance: MILK THISTLE
     Indication: PROPHYLAXIS
     Dosage: 140 TABLET
     Route: 048
     Dates: start: 20161129
  11. RIFAMPIN. [Concomitant]
     Active Substance: RIFAMPIN
     Indication: DYSPNOEA
     Route: 048
     Dates: start: 20170302, end: 20170307
  12. SOLONDO [Concomitant]
     Active Substance: PREDNISOLONE
     Indication: DYSPNOEA
     Route: 048
     Dates: start: 20170302, end: 20170306
  13. DENOGAN [Concomitant]
     Active Substance: PROPACETAMOL HYDROCHLORIDE
     Indication: PYREXIA
     Route: 042
     Dates: start: 20170221, end: 20170221
  14. PYRIDOXINE [Concomitant]
     Active Substance: PYRIDOXINE
     Indication: PROPHYLAXIS
     Route: 048
     Dates: start: 20161202
  15. TRAJENTA [Concomitant]
     Active Substance: LINAGLIPTIN
     Indication: DIABETES MELLITUS
     Route: 048
     Dates: start: 20161210
  16. COSSAC [Concomitant]
     Indication: DYSPNOEA
     Dosage: 1 TABLET
     Route: 048
     Dates: start: 20170302, end: 20170307
  17. NASEA [Concomitant]
     Active Substance: RAMOSETRON HYDROCHLORIDE
     Route: 042
     Dates: start: 20161102
  18. LEUCOVORIN. [Suspect]
     Active Substance: LEUCOVORIN
     Indication: GASTRIC CANCER
     Dosage: LAST DOSE, 200 MG/M2?DATE OF MOST RECENT DOSE, 20/FEB/2017
     Route: 042
     Dates: start: 20161004
  19. NEURONTIN (SOUTH KOREA) [Concomitant]
     Indication: NEUROPATHY PERIPHERAL
     Route: 048
     Dates: start: 20161202
  20. NASEA [Concomitant]
     Active Substance: RAMOSETRON HYDROCHLORIDE
     Indication: NAUSEA
     Route: 048
     Dates: start: 20161102
  21. OXALIPLATIN. [Suspect]
     Active Substance: OXALIPLATIN
     Indication: GASTRIC CANCER
     Dosage: LAST DOSE, 50 MG/M2?DATE OF MOST RECENT DOSE, 20/FEB/2017
     Route: 042
     Dates: start: 20161004
  22. PYRIDOXINE [Concomitant]
     Active Substance: PYRIDOXINE
     Route: 048
     Dates: start: 20170307
  23. VENTOLIN [Concomitant]
     Active Substance: ALBUTEROL SULFATE
     Indication: DYSPNOEA
     Dosage: 1 INHALATION
     Route: 048
     Dates: start: 20170228
  24. ERDOS [Concomitant]
     Indication: DYSPNOEA
     Route: 048
     Dates: start: 20170302
  25. LASIX [Concomitant]
     Active Substance: FUROSEMIDE
     Indication: PROPHYLAXIS
     Route: 042
     Dates: start: 20161017
  26. MUCOSTA [Concomitant]
     Active Substance: REBAMIPIDE
     Indication: PROPHYLAXIS
     Route: 048
     Dates: start: 20161207
  27. LANSTON [Concomitant]
     Active Substance: LANSOPRAZOLE
     Indication: PROPHYLAXIS
     Route: 048
     Dates: start: 20161207
  28. RIFAMPIN. [Concomitant]
     Active Substance: RIFAMPIN
     Indication: PROPHYLAXIS
     Route: 048
     Dates: start: 20170206, end: 20170207
  29. VENTOLIN [Concomitant]
     Active Substance: ALBUTEROL SULFATE
     Indication: DYSPNOEA
     Dosage: 1 INHALATION
     Route: 048
     Dates: start: 20170227, end: 20170228

REACTIONS (1)
  - Stomatitis [Recovering/Resolving]

NARRATIVE: CASE EVENT DATE: 20170306
